FAERS Safety Report 4967083-1 (Version None)
Quarter: 2006Q2

REPORT INFORMATION
  Report Type: 
  Country: None (occurrence: None)
  Receive Date: 20060403
  Receipt Date: 20060320
  Transmission Date: 20061013
  Serious: No
  Sender: FDA-Public Use
  Company Number: 6020106

PATIENT
  Age: 24 Year
  Sex: Female

DRUGS (2)
  1. AMNESTEEM [Suspect]
     Indication: ACNE CYSTIC
     Dosage: 60 MG, 1 D; ORAL
     Route: 048
     Dates: start: 20060110, end: 20060120
  2. YASMIN [Concomitant]

REACTIONS (3)
  - FEAR [None]
  - HALLUCINATION, VISUAL [None]
  - PARANOIA [None]
